FAERS Safety Report 6613552-8 (Version None)
Quarter: 2010Q1

REPORT INFORMATION
  Report Type: 
  Country: None (occurrence: None)
  Receive Date: 20100304
  Receipt Date: 20100225
  Transmission Date: 20100710
  Serious: Yes (Hospitalization)
  Sender: FDA-Public Use
  Company Number: FR-ROCHE-584250

PATIENT
  Sex: Female
  Weight: 92 kg

DRUGS (4)
  1. CAPECITABINE [Suspect]
     Indication: BREAST CANCER
     Dosage: TREATMENT DELAYED.CUMULATIVE DOSE:67000 MG
     Route: 065
     Dates: start: 20080730
  2. DOCETAXEL [Suspect]
     Indication: BREAST CANCER
     Dosage: TREATMENT DELAYED. CUMULATIVE DOSE:305 MG
     Route: 065
     Dates: start: 20080730
  3. TAHOR [Concomitant]
  4. TERCIAN [Concomitant]

REACTIONS (2)
  - FEBRILE BONE MARROW APLASIA [None]
  - PALMAR-PLANTAR ERYTHRODYSAESTHESIA SYNDROME [None]
